FAERS Safety Report 12120823 (Version 1)
Quarter: 2016Q1

REPORT INFORMATION
  Report Type: Spontaneous
  Country: US (occurrence: US)
  Receive Date: 20160226
  Receipt Date: 20160226
  Transmission Date: 20160526
  Serious: Yes (Other)
  Sender: FDA-Public Use
  Company Number: US-FRESENIUS KABI-FK201601028

PATIENT
  Age: 103 Day
  Sex: Female

DRUGS (2)
  1. METHOTREXATE (MANUFACTURER UNKNOWN) [Suspect]
     Active Substance: METHOTREXATE
     Indication: INFLAMMATORY MYOFIBROBLASTIC TUMOUR
     Route: 042
  2. VINBLASTINE (MANUFACTURER UNKNOWN) [Suspect]
     Active Substance: VINBLASTINE
     Indication: INFLAMMATORY MYOFIBROBLASTIC TUMOUR
     Route: 042

REACTIONS (1)
  - Cholestasis [Unknown]
